FAERS Safety Report 18064033 (Version 2)
Quarter: 2020Q4

REPORT INFORMATION
  Report Type: Report from Study
  Country: None (occurrence: US)
  Receive Date: 20200724
  Receipt Date: 20201030
  Transmission Date: 20210113
  Serious: Yes (Other)
  Sender: FDA-Public Use
  Company Number: US-ABBVIE-20K-163-3431640-00

PATIENT
  Sex: Female

DRUGS (1)
  1. HUMIRA [Suspect]
     Active Substance: ADALIMUMAB
     Indication: RHEUMATOID ARTHRITIS
     Route: 058
     Dates: end: 2020

REACTIONS (6)
  - Pain [Unknown]
  - Dislocation of vertebra [Unknown]
  - Blood glucose increased [Unknown]
  - Asthenia [Unknown]
  - Nausea [Unknown]
  - Intervertebral disc protrusion [Unknown]
